FAERS Safety Report 10187810 (Version 1)
Quarter: 2014Q2

REPORT INFORMATION
  Report Type: Spontaneous
  Country: US (occurrence: US)
  Receive Date: 20140522
  Receipt Date: 20140522
  Transmission Date: 20141212
  Serious: No
  Sender: FDA-Public Use
  Company Number: US-SANOFI-AVENTIS-2013SA091411

PATIENT
  Sex: Female

DRUGS (6)
  1. LANTUS SOLOSTAR [Suspect]
     Indication: TYPE 2 DIABETES MELLITUS
     Dosage: DOSE:22 UNIT(S)
     Route: 051
  2. SOLOSTAR [Concomitant]
  3. SULFONAMIDES [Suspect]
     Route: 065
  4. SODIUM [Suspect]
     Route: 065
  5. TYLENOL [Suspect]
     Route: 065
  6. ASPIRIN [Suspect]
     Route: 065

REACTIONS (7)
  - Bleeding time prolonged [Not Recovered/Not Resolved]
  - Migraine [Not Recovered/Not Resolved]
  - Extra dose administered [Unknown]
  - Injection site haemorrhage [Not Recovered/Not Resolved]
  - Injection site discolouration [Not Recovered/Not Resolved]
  - Blood glucose increased [Not Recovered/Not Resolved]
  - Drug hypersensitivity [Not Recovered/Not Resolved]
